FAERS Safety Report 19785987 (Version 1)
Quarter: 2021Q3

REPORT INFORMATION
  Report Type: Spontaneous
  Country: GB (occurrence: GB)
  Receive Date: 20210903
  Receipt Date: 20210903
  Transmission Date: 20211014
  Serious: Yes (Life-Threatening)
  Sender: FDA-Public Use
  Company Number: GB-ASTRAZENECA-2021A700118

PATIENT
  Sex: Female
  Weight: 108.8 kg

DRUGS (2)
  1. DAPAGLIFLOZIN PROPANDIOL, MONOHYDRAT [Suspect]
     Active Substance: DAPAGLIFLOZIN PROPANEDIOL
     Indication: DIABETIC KETOACIDOSIS
     Dosage: 10MG10.0MG UNKNOWN
     Route: 048
     Dates: start: 20151126, end: 20210726
  2. VITAMIN C [Concomitant]
     Active Substance: ASCORBIC ACID
     Indication: ILL-DEFINED DISORDER

REACTIONS (1)
  - Diabetic ketoacidosis [Recovering/Resolving]
